FAERS Safety Report 10027872 (Version 3)
Quarter: 2014Q1

REPORT INFORMATION
  Report Type: Report from Study
  Country: DE (occurrence: None)
  Receive Date: 20140225
  Receipt Date: 20140320
  Transmission Date: 20141002
  Serious: Yes (Death, Hospitalization)
  Sender: FDA-Public Use
  Company Number: US-2014-10087

PATIENT
  Age: 48 Year
  Sex: Male

DRUGS (6)
  1. TOLVAPTAN [Suspect]
     Indication: CONGENITAL CYSTIC KIDNEY DISEASE
     Route: 048
     Dates: start: 20110405, end: 20131124
  2. RAMIPRIL (RAMIPRIL) [Concomitant]
  3. METOPROLOL (METOPROLOL SUCCINATE) [Concomitant]
  4. ALLOPURINOL (ALLOPURINOL SODIUM) [Concomitant]
  5. SIMVASTATIN (SIMVASTATIN) [Concomitant]
  6. ACETYLSALICYCLIC ACID (ACETYLSALICYLIC ACID) [Concomitant]

REACTIONS (2)
  - Pancreatitis necrotising [None]
  - Dialysis [None]
